FAERS Safety Report 21611056 (Version 12)
Quarter: 2023Q1

REPORT INFORMATION
  Report Type: Report from Study
  Country: CN (occurrence: CN)
  Receive Date: 20221117
  Receipt Date: 20230330
  Transmission Date: 20230418
  Serious: Yes (Hospitalization)
  Sender: FDA-Public Use
  Company Number: CN-JNJFOC-20221132799

PATIENT
  Age: 72 Year
  Sex: Male
  Weight: 80 kg

DRUGS (35)
  1. AMIVANTAMAB [Suspect]
     Active Substance: AMIVANTAMAB
     Indication: Non-small cell lung cancer metastatic
     Dosage: INITIAL DOSE OF 1400 MG
     Route: 042
     Dates: start: 20220318
  2. AMIVANTAMAB [Suspect]
     Active Substance: AMIVANTAMAB
     Dosage: REDUCED DUE TO ADVERSE EVENTS AT C3D15 VISIT AND DISCONTINUED ON 08-JUL-2022
     Route: 042
     Dates: start: 20220610, end: 20220624
  3. AMIVANTAMAB [Suspect]
     Active Substance: AMIVANTAMAB
     Dosage: REDUCED
     Route: 042
     Dates: start: 20220811
  4. AMIVANTAMAB [Suspect]
     Active Substance: AMIVANTAMAB
     Route: 042
     Dates: start: 20220919, end: 20221008
  5. AMIVANTAMAB [Suspect]
     Active Substance: AMIVANTAMAB
     Dosage: WITH THE MOST RECENT DOSE ON 28-OCT-2022, C9D1
     Route: 042
     Dates: start: 20221018
  6. AMLODIPINE BESYLATE [Concomitant]
     Active Substance: AMLODIPINE BESYLATE
     Indication: Hypertension
     Route: 048
     Dates: start: 20180101
  7. POLYMYXIN B [Concomitant]
     Active Substance: POLYMYXIN B
     Indication: Rash
     Route: 061
     Dates: start: 20220430, end: 20221124
  8. POLYMYXIN B [Concomitant]
     Active Substance: POLYMYXIN B
     Indication: Paronychia
     Dosage: FREQUENCY: TID
     Route: 061
     Dates: start: 20220708
  9. POLYMYXIN B [Concomitant]
     Active Substance: POLYMYXIN B
     Indication: Rash
     Route: 061
     Dates: start: 20220921
  10. POLYMYXIN B [Concomitant]
     Active Substance: POLYMYXIN B
     Indication: Mucosal inflammation
     Dosage: FREQUENCY: TID
     Route: 061
     Dates: start: 20221001, end: 20221101
  11. OMEPRAZOLE SODIUM [Concomitant]
     Active Substance: OMEPRAZOLE SODIUM
     Indication: Prophylaxis
     Route: 042
     Dates: start: 20220729
  12. MAGNESIUM ISOGLYCYRRHIZINATE [Concomitant]
     Active Substance: MAGNESIUM ISOGLYCYRRHIZINATE
     Indication: Prophylaxis
     Route: 042
     Dates: start: 20220729
  13. LEVOCARNITINE [Concomitant]
     Active Substance: LEVOCARNITINE
     Indication: Prophylaxis
     Route: 042
     Dates: start: 20220729
  14. ALBUMIN PREPARED FROM HUMAN PLASMA [Concomitant]
     Indication: Hypoalbuminaemia
     Route: 042
     Dates: start: 20220729
  15. CHLORHEXIDINE DIACETATE [Concomitant]
     Active Substance: CHLORHEXIDINE DIACETATE
     Indication: Rash
     Dosage: WITH HYDROCORTISONE
     Route: 061
     Dates: start: 20220825
  16. ALFACALCIDOL [Concomitant]
     Active Substance: ALFACALCIDOL
     Indication: Hypocalcaemia
     Route: 048
     Dates: start: 20220901, end: 20221202
  17. ALFACALCIDOL [Concomitant]
     Active Substance: ALFACALCIDOL
     Indication: Prophylaxis
     Route: 048
     Dates: start: 20221203, end: 20221214
  18. ALFACALCIDOL [Concomitant]
     Active Substance: ALFACALCIDOL
     Route: 048
     Dates: start: 20221215, end: 20230118
  19. ALFACALCIDOL [Concomitant]
     Active Substance: ALFACALCIDOL
     Route: 048
     Dates: start: 20230119
  20. CALCIUM CARBONATE\CHOLECALCIFEROL [Concomitant]
     Active Substance: CALCIUM CARBONATE\CHOLECALCIFEROL
     Indication: Hypocalcaemia
     Route: 048
     Dates: start: 20220901, end: 20221202
  21. CALCIUM CARBONATE\CHOLECALCIFEROL [Concomitant]
     Active Substance: CALCIUM CARBONATE\CHOLECALCIFEROL
     Indication: Prophylaxis
     Route: 048
     Dates: start: 20221203, end: 20221214
  22. CALCIUM CARBONATE\CHOLECALCIFEROL [Concomitant]
     Active Substance: CALCIUM CARBONATE\CHOLECALCIFEROL
     Route: 048
     Dates: start: 20230119
  23. CALCIUM CARBONATE\CHOLECALCIFEROL [Concomitant]
     Active Substance: CALCIUM CARBONATE\CHOLECALCIFEROL
     Route: 048
     Dates: start: 20221215, end: 20230118
  24. BOVINE BASIC FIBROBLAST GROWTH FACTOR [Concomitant]
     Indication: Mucosal inflammation
     Route: 061
     Dates: start: 20220919, end: 20221202
  25. RIVAROXABAN [Concomitant]
     Active Substance: RIVAROXABAN
     Indication: Deep vein thrombosis
     Route: 048
     Dates: start: 20221017, end: 20221031
  26. RIVAROXABAN [Concomitant]
     Active Substance: RIVAROXABAN
     Route: 048
     Dates: start: 20221101, end: 20221203
  27. RIVAROXABAN [Concomitant]
     Active Substance: RIVAROXABAN
     Route: 048
     Dates: start: 20221206, end: 20221206
  28. RIVAROXABAN [Concomitant]
     Active Substance: RIVAROXABAN
     Route: 048
     Dates: start: 20221207
  29. DENOSUMAB [Concomitant]
     Active Substance: DENOSUMAB
     Indication: Prophylaxis
     Dosage: FREQUENCY: ONCE
     Route: 058
     Dates: start: 20221028, end: 20221028
  30. HYDROCORTISONE [Concomitant]
     Active Substance: HYDROCORTISONE
     Indication: Rash
     Route: 061
     Dates: start: 20220825, end: 20221124
  31. SODIUM HYALURONATE [Concomitant]
     Active Substance: HYALURONATE SODIUM
     Indication: Conjunctivitis
     Route: 047
     Dates: start: 20221111
  32. LEVOFLOXACIN [Concomitant]
     Active Substance: LEVOFLOXACIN
     Indication: Conjunctivitis
     Route: 047
     Dates: start: 20221111
  33. RIVAROXABAN [Concomitant]
     Active Substance: RIVAROXABAN
     Indication: Deep vein thrombosis
     Route: 048
     Dates: start: 20221017, end: 20221031
  34. RIVAROXABAN [Concomitant]
     Active Substance: RIVAROXABAN
     Route: 048
     Dates: start: 20221101
  35. IBUPROFEN [Concomitant]
     Active Substance: IBUPROFEN
     Indication: Suspected COVID-19
     Route: 048
     Dates: start: 20221207, end: 20221208

REACTIONS (3)
  - Genital tract inflammation [Recovering/Resolving]
  - Deep vein thrombosis [Not Recovered/Not Resolved]
  - Anal inflammation [Recovered/Resolved]

NARRATIVE: CASE EVENT DATE: 20221111
